FAERS Safety Report 9891175 (Version 1)
Quarter: 2014Q1

REPORT INFORMATION
  Report Type: Spontaneous
  Country: FR (occurrence: FR)
  Receive Date: 20140212
  Receipt Date: 20140212
  Transmission Date: 20141002
  Serious: Yes (Other)
  Sender: FDA-Public Use
  Company Number: FR-JNJFOC-20140204807

PATIENT
  Age: 67 Year
  Sex: Male

DRUGS (5)
  1. XARELTO [Suspect]
     Indication: CEREBROVASCULAR ACCIDENT PROPHYLAXIS
     Route: 048
  2. XARELTO [Suspect]
     Indication: ATRIAL FIBRILLATION
     Route: 048
  3. HYPERIUM [Concomitant]
     Route: 065
  4. FLECAINE [Concomitant]
     Route: 065
  5. DEPAKINE [Concomitant]
     Indication: EPILEPSY
     Route: 065

REACTIONS (1)
  - Epilepsy [Recovered/Resolved]
